FAERS Safety Report 21066995 (Version 2)
Quarter: 2022Q3

REPORT INFORMATION
  Report Type: Spontaneous
  Country: JP (occurrence: JP)
  Receive Date: 20220712
  Receipt Date: 20220725
  Transmission Date: 20221026
  Serious: No
  Sender: FDA-Public Use
  Company Number: None

PATIENT
  Age: 38 Year
  Sex: Female
  Weight: 115 kg

DRUGS (5)
  1. RYBELSUS [Suspect]
     Active Substance: SEMAGLUTIDE
     Indication: Type 2 diabetes mellitus
     Dosage: 3 MG, QD
     Route: 048
     Dates: start: 20220426, end: 20220613
  2. DUPHASTON [Concomitant]
     Active Substance: DYDROGESTERONE
     Indication: Product used for unknown indication
     Dosage: UNK
  3. TELMISARTAN [Concomitant]
     Active Substance: TELMISARTAN
     Indication: Product used for unknown indication
     Dosage: UNK
  4. AMLODIPINE [Concomitant]
     Active Substance: AMLODIPINE BESYLATE
     Indication: Product used for unknown indication
     Dosage: UNK
  5. EMPAGLIFLOZIN [Concomitant]
     Active Substance: EMPAGLIFLOZIN
     Indication: Type 2 diabetes mellitus
     Dosage: UNK

REACTIONS (5)
  - Hepatic enzyme increased [Recovered/Resolved]
  - Hepatic steatosis [Unknown]
  - Condition aggravated [Unknown]
  - Increased appetite [Unknown]
  - Weight increased [Unknown]

NARRATIVE: CASE EVENT DATE: 20220519
